FAERS Safety Report 4978464-4 (Version None)
Quarter: 2006Q1

REPORT INFORMATION
  Report Type: 
  Country: None (occurrence: None)
  Receive Date: 20060227
  Receipt Date: 20050815
  Transmission Date: 20060701
  Serious: Yes (Hospitalization)
  Sender: FDA-Public Use
  Company Number: WAES 0508USA02521

PATIENT
  Age: 35 Year
  Sex: Male
  Weight: 112.0385 kg

DRUGS (2)
  1. ZOCOR [Suspect]
     Indication: BLOOD CHOLESTEROL INCREASED
     Dosage: 40 MG/DAILY/PO
     Route: 048
     Dates: start: 20050806, end: 20050807
  2. NEXIUM [Concomitant]

REACTIONS (1)
  - RHABDOMYOLYSIS [None]
